FAERS Safety Report 6114273-0 (Version None)
Quarter: 2009Q1

REPORT INFORMATION
  Report Type: 
  Country: None (occurrence: None)
  Receive Date: 20090312
  Receipt Date: 20081027
  Transmission Date: 20090719
  Serious: No
  Sender: FDA-Public Use
  Company Number: US-ABBOTT-08P-163-0484280-00

PATIENT
  Sex: Female
  Weight: 52.21 kg

DRUGS (3)
  1. DEPAKOTE [Suspect]
     Indication: HEADACHE
     Dosage: 250 MG/AM AND 375 MG AT BEDTIME
     Route: 048
     Dates: start: 20081008, end: 20081027
  2. DEPACON [Suspect]
     Indication: HEADACHE
     Route: 042
     Dates: start: 20071027, end: 20081027
  3. KETOROLAC TROMETHAMINE [Suspect]
     Indication: HEADACHE
     Route: 042
     Dates: start: 20081027, end: 20081027

REACTIONS (4)
  - HEADACHE [None]
  - MYALGIA [None]
  - OEDEMA PERIPHERAL [None]
  - PAIN [None]
